FAERS Safety Report 10787298 (Version 2)
Quarter: 2015Q2

REPORT INFORMATION
  Report Type: Spontaneous
  Country: JP (occurrence: JP)
  Receive Date: 20150211
  Receipt Date: 20150603
  Transmission Date: 20150821
  Serious: Yes (Death)
  Sender: FDA-Public Use
  Company Number: JP-MYLANLABS-2015M1001077

PATIENT

DRUGS (2)
  1. CARBOPLATIN INJECTION 50 MG ^NK^ [Suspect]
     Active Substance: CARBOPLATIN
     Indication: URETERIC CANCER
     Dosage: UNK UNK, CYCLE
     Route: 041
     Dates: start: 20100819, end: 20100819
  2. GEMCITABINE HYDROCHLORIDE. [Suspect]
     Active Substance: GEMCITABINE HYDROCHLORIDE
     Indication: URETERIC CANCER
     Dosage: UNK UNK, CYCLE
     Route: 041
     Dates: start: 20100818, end: 20100818

REACTIONS (1)
  - Large intestine perforation [Fatal]

NARRATIVE: CASE EVENT DATE: 20100822
